FAERS Safety Report 9769526 (Version 1)
Quarter: 2013Q4

REPORT INFORMATION
  Report Type: Spontaneous
  Country: US (occurrence: US)
  Receive Date: 20131218
  Receipt Date: 20131218
  Transmission Date: 20140711
  Serious: No
  Sender: FDA-Public Use
  Company Number: US-SHIONOGI, INC-2013000314

PATIENT
  Age: 54 Year
  Sex: Female
  Weight: 84.35 kg

DRUGS (1)
  1. OSPHENA [Suspect]
     Indication: DYSPAREUNIA
     Dosage: 60 MG, QD
     Dates: start: 201307, end: 201309

REACTIONS (1)
  - Contusion [Recovering/Resolving]
